FAERS Safety Report 22131084 (Version 1)
Quarter: 2023Q1

REPORT INFORMATION
  Report Type: Spontaneous
  Country: US (occurrence: None)
  Receive Date: 20230322
  Receipt Date: 20230322
  Transmission Date: 20230418
  Serious: Yes (Other)
  Sender: FDA-Public Use
  Company Number: None

PATIENT
  Age: 36 Year
  Sex: Female

DRUGS (1)
  1. VITAMINS [Suspect]
     Active Substance: VITAMINS
     Indication: Nausea

REACTIONS (3)
  - Erythema [None]
  - Heart rate increased [None]
  - Infusion related reaction [None]

NARRATIVE: CASE EVENT DATE: 20230221
